FAERS Safety Report 6997707-9 (Version None)
Quarter: 2010Q3

REPORT INFORMATION
  Report Type: 
  Country: None (occurrence: None)
  Receive Date: 20100918
  Receipt Date: 20091027
  Transmission Date: 20110219
  Serious: No
  Sender: FDA-Public Use
  Company Number: US-WYE-H12435109

PATIENT
  Age: 61 Year
  Sex: Female

DRUGS (7)
  1. PRISTIQ [Suspect]
     Indication: DEPRESSION
     Route: 048
     Dates: start: 20091110
  2. PRISTIQ [Suspect]
     Indication: ANXIETY
  3. BUSPIRONE HCL [Concomitant]
  4. CELEXA [Suspect]
     Dates: start: 20090915, end: 20091110
  5. ATENOLOL [Concomitant]
  6. ACTOS [Concomitant]
  7. PRILOSEC [Concomitant]

REACTIONS (3)
  - CONDITION AGGRAVATED [None]
  - HYPERTENSION [None]
  - PARAESTHESIA [None]
